FAERS Safety Report 10060886 (Version 3)
Quarter: 2016Q1

REPORT INFORMATION
  Report Type: Spontaneous
  Country: SE (occurrence: SE)
  Receive Date: 20140404
  Receipt Date: 20160302
  Transmission Date: 20160525
  Serious: Yes (Hospitalization)
  Sender: FDA-Public Use
  Company Number: SE-ASTRAZENECA-2014SE21377

PATIENT
  Age: 21 Year
  Sex: Female

DRUGS (12)
  1. SEROQUEL [Suspect]
     Active Substance: QUETIAPINE FUMARATE
     Route: 048
  2. SEROQUEL [Suspect]
     Active Substance: QUETIAPINE FUMARATE
     Dosage: APPROXIMATELY 20 TABLETS
     Route: 048
     Dates: start: 20130131, end: 20130131
  3. SEROQUEL [Suspect]
     Active Substance: QUETIAPINE FUMARATE
     Dosage: INGESTED 16 G
     Route: 048
     Dates: start: 20130202, end: 20130202
  4. SEROQUEL [Suspect]
     Active Substance: QUETIAPINE FUMARATE
     Dosage: 10-35 TABLETS
     Route: 048
     Dates: start: 20130204, end: 20130204
  5. ATARAX [Concomitant]
     Active Substance: HYDROXYZINE\HYDROXYZINE HYDROCHLORIDE
  6. FLUOXETINE [Concomitant]
     Active Substance: FLUOXETINE HYDROCHLORIDE
  7. PROMETHAZINE [Concomitant]
     Active Substance: PROMETHAZINE\PROMETHAZINE HYDROCHLORIDE
  8. CAMPRAL [Concomitant]
     Active Substance: ACAMPROSATE CALCIUM
  9. PROPAVAN [Concomitant]
     Active Substance: PROPIOMAZINE
  10. ANTABUSE [Concomitant]
     Active Substance: DISULFIRAM
  11. ETONOGESTREL [Concomitant]
     Active Substance: ETONOGESTREL
  12. STESOLID [Concomitant]
     Active Substance: DIAZEPAM

REACTIONS (9)
  - Toxicity to various agents [Recovered/Resolved]
  - Overdose [Unknown]
  - Hepatic function abnormal [Recovered/Resolved]
  - Seizure [Recovered/Resolved]
  - Confusional state [Recovered/Resolved]
  - Depressed level of consciousness [Recovered/Resolved]
  - Sinus tachycardia [Recovered/Resolved]
  - Hallucinations, mixed [Recovered/Resolved]
  - Hypokalaemia [Recovered/Resolved]

NARRATIVE: CASE EVENT DATE: 20130131
